FAERS Safety Report 18495654 (Version 1)
Quarter: 2020Q4

REPORT INFORMATION
  Report Type: Spontaneous
  Country: US (occurrence: US)
  Receive Date: 20201112
  Receipt Date: 20201112
  Transmission Date: 20210114
  Serious: No
  Sender: FDA-Public Use
  Company Number: US-IMPRIMIS NJOF-2095857

PATIENT
  Sex: Female

DRUGS (1)
  1. DEX-MOXI PF [Suspect]
     Active Substance: DEXAMETHASONE SODIUM PHOSPHATE\MOXIFLOXACIN HYDROCHLORIDE MONOHYDRATE
     Indication: CATARACT OPERATION
     Route: 047

REACTIONS (1)
  - Corneal oedema [Unknown]
